FAERS Safety Report 21536088 (Version 1)
Quarter: 2022Q4

REPORT INFORMATION
  Report Type: Spontaneous
  Country: US (occurrence: US)
  Receive Date: 20221101
  Receipt Date: 20221101
  Transmission Date: 20230113
  Serious: Yes (Hospitalization, Other)
  Sender: FDA-Public Use
  Company Number: US-PROCTER_AND_GAMBLE-PH22010830

PATIENT
  Sex: Female

DRUGS (3)
  1. DIPHENHYDRAMINE HYDROCHLORIDE [Suspect]
     Active Substance: DIPHENHYDRAMINE HYDROCHLORIDE
     Dosage: 60 TABLET, 1 ONLY (ACUTE INGESTION OF 60 ABLETS OF ACETAMINOPHEN-DIPHENHYDRAMINE COMBINATION PRODUCT
     Route: 048
  2. ACETAMINOPHEN [Suspect]
     Active Substance: ACETAMINOPHEN
     Dosage: 60 TABLETS OF ACETAMINOPHEN-DIPHENHYDRAMINE COMBINATION PRODUCT
     Route: 048
  3. METFORMIN [Suspect]
     Active Substance: METFORMIN HYDROCHLORIDE
     Dosage: ACUTE INGESTION OF 90 GM OF METFORMIN
     Route: 048

REACTIONS (4)
  - Anuria [Unknown]
  - Lactic acidosis [Unknown]
  - Osmolar gap increased [Unknown]
  - Overdose [Unknown]
